FAERS Safety Report 9249816 (Version 2)
Quarter: 2013Q4

REPORT INFORMATION
  Report Type: Spontaneous
  Country: SE (occurrence: SE)
  Receive Date: 20130423
  Receipt Date: 20131205
  Transmission Date: 20140711
  Serious: Yes (Other)
  Sender: FDA-Public Use
  Company Number: SE-WATSON-2013-06944

PATIENT
  Sex: Female

DRUGS (1)
  1. SIMVASTATIN (UNKNOWN) [Suspect]
     Indication: HYPERCHOLESTEROLAEMIA
     Dosage: UNK
     Route: 065
     Dates: end: 20120209

REACTIONS (3)
  - Pancreatitis [Unknown]
  - Depression [Unknown]
  - Amnesia [Unknown]
